FAERS Safety Report 16937199 (Version 1)
Quarter: 2019Q4

REPORT INFORMATION
  Report Type: Spontaneous
  Country: US (occurrence: US)
  Receive Date: 20191018
  Receipt Date: 20191018
  Transmission Date: 20200122
  Serious: Yes (Life-Threatening, Hospitalization, Disabling, Other)
  Sender: FDA-Public Use
  Company Number: US-GLAXOSMITHKLINE-US2019GSK188241

PATIENT
  Age: 45 Year
  Sex: Male
  Weight: 54 kg

DRUGS (1)
  1. LAMOTRIGINE. [Suspect]
     Active Substance: LAMOTRIGINE
     Indication: JUVENILE MYOCLONIC EPILEPSY
     Dosage: UNK
     Route: 065

REACTIONS (21)
  - Septic shock [Unknown]
  - Salmonella sepsis [Unknown]
  - Acute respiratory distress syndrome [Unknown]
  - Cough [Unknown]
  - Multiple organ dysfunction syndrome [Unknown]
  - Pain [Unknown]
  - Hypovolaemic shock [Unknown]
  - General physical health deterioration [Unknown]
  - Pleural effusion [Unknown]
  - Urinary tract infection [Unknown]
  - Viral infection [Unknown]
  - Pyrexia [Unknown]
  - Respiratory failure [Unknown]
  - Typhoid fever [Unknown]
  - Back pain [Unknown]
  - Rash [Unknown]
  - Diarrhoea [Unknown]
  - Haemophagocytic lymphohistiocytosis [Unknown]
  - Musculoskeletal stiffness [Unknown]
  - Headache [Unknown]
  - Ocular hyperaemia [Unknown]
